FAERS Safety Report 6530424-8 (Version None)
Quarter: 2010Q1

REPORT INFORMATION
  Report Type: 
  Country: None (occurrence: None)
  Receive Date: 20100107
  Receipt Date: 20100105
  Transmission Date: 20100710
  Serious: Yes (Other)
  Sender: FDA-Public Use
  Company Number: US-GENENTECH-287992

PATIENT
  Sex: Female
  Weight: 88 kg

DRUGS (23)
  1. BLINDED RITUXIMAB [Suspect]
     Indication: ANTI-NEUTROPHIL CYTOPLASMIC ANTIBODY POSITIVE VASCULITIS
     Dosage: 701 MG, UNK
     Route: 042
     Dates: start: 20080118, end: 20080118
  2. BLINDED RITUXIMAB [Suspect]
     Dosage: 701 MG, UNK
     Route: 042
     Dates: start: 20080125, end: 20080125
  3. BLINDED RITUXIMAB [Suspect]
     Dosage: 701 MG, UNK
     Route: 042
     Dates: start: 20080201, end: 20080201
  4. BLINDED RITUXIMAB [Suspect]
     Dosage: 701 MG, UNK
     Route: 042
     Dates: start: 20080208, end: 20080208
  5. CYCLOPHOSPHAMIDE [Suspect]
     Indication: ANTI-NEUTROPHIL CYTOPLASMIC ANTIBODY POSITIVE VASCULITIS
     Dosage: 100 MG, QD
     Route: 048
     Dates: start: 20080119, end: 20080715
  6. AZATHIOPRINE OR PLACEBO [Suspect]
     Indication: ANTI-NEUTROPHIL CYTOPLASMIC ANTIBODY POSITIVE VASCULITIS
     Dosage: 25 MG, QD
     Route: 048
     Dates: start: 20080723, end: 20090707
  7. CYMBALTA [Concomitant]
     Indication: DEPRESSION
     Dosage: 60 MG, QD
     Route: 048
     Dates: start: 20051118
  8. M.V.I. [Concomitant]
     Indication: MEDICAL DIET
     Dosage: 1 UNK, QD
     Route: 048
     Dates: start: 19980101
  9. CALCIUM 600 + D [Concomitant]
     Indication: OSTEOPOROSIS PROPHYLAXIS
     Dosage: 600 MG, QD
     Dates: start: 20030101
  10. SYNTHROID [Concomitant]
     Indication: HYPOTHYROIDISM
     Dosage: 0.75 A?G, QD
     Route: 048
     Dates: start: 20080229
  11. OXYCODONE HCL AND ACETAMINOPHEN [Concomitant]
     Indication: HEADACHE
     Dosage: UNK
     Route: 048
     Dates: start: 20080304
  12. MEPRON [Concomitant]
     Indication: PROPHYLAXIS
     Dosage: 10 ML, QD
     Route: 048
     Dates: start: 20080418
  13. TYLENOL (CAPLET) [Concomitant]
     Indication: HEADACHE
     Dosage: 1000 MG, PRN
     Route: 048
     Dates: start: 20080307
  14. PROTONIX [Concomitant]
     Indication: CHEST DISCOMFORT
     Dosage: 40 MG, QD
     Route: 048
     Dates: start: 20080522
  15. PROTONIX [Concomitant]
     Indication: PROPHYLAXIS
     Dosage: 40 MG, QD
     Route: 048
     Dates: start: 20090701
  16. PREDNISONE [Concomitant]
     Indication: ARTHRITIS
     Dosage: 5 MG, UNK
     Route: 048
     Dates: start: 20080716
  17. AMLODIPINE [Concomitant]
     Indication: HYPERTENSION
     Dosage: 15 MG, QD
     Route: 048
     Dates: start: 20090707
  18. IBUPROFEN [Concomitant]
     Indication: CONSTIPATION
     Dosage: 200 MG, PRN
     Route: 048
     Dates: start: 20080208
  19. SIMVASTATIN [Concomitant]
     Indication: HYPERCHOLESTEROLAEMIA
     Dosage: 20 MG, QD
     Route: 048
     Dates: start: 20081001
  20. LORAZEPAM [Concomitant]
     Indication: DRUG USE FOR UNKNOWN INDICATION
     Dosage: 1.5 UNK, PRN
  21. ARANESP [Concomitant]
     Indication: ANAEMIA
     Dosage: 1000 A?G, PRN
     Route: 058
  22. DOCUSATE [Concomitant]
     Indication: DRUG USE FOR UNKNOWN INDICATION
     Dosage: 200 MG, PRN
     Route: 048
  23. TRIAMCINOLONE [Concomitant]
     Indication: DRUG USE FOR UNKNOWN INDICATION
     Dosage: 0.1 UNK, UNK

REACTIONS (1)
  - SQUAMOUS CELL CARCINOMA [None]
